FAERS Safety Report 24862431 (Version 3)
Quarter: 2025Q1

REPORT INFORMATION
  Report Type: Report from Study
  Country: EG (occurrence: EG)
  Receive Date: 20250120
  Receipt Date: 20250214
  Transmission Date: 20250409
  Serious: Yes (Other)
  Sender: NOVARTIS
  Company Number: EG-002147023-NVSC2025EG007846

PATIENT
  Age: 42 Year
  Sex: Female
  Weight: 110 kg

DRUGS (3)
  1. MAYZENT [Suspect]
     Active Substance: SIPONIMOD
     Indication: Multiple sclerosis
     Dosage: 2 MG, QD (ONE TAB ONCE DAILY)
     Route: 048
     Dates: start: 20241012
  2. LEVOTHYROXINE [Concomitant]
     Active Substance: LEVOTHYROXINE
     Indication: Hypothyroidism
     Dosage: 100 MG, QD START DATE FROM 11YEARS
     Route: 048
  3. BACLOFEN [Concomitant]
     Active Substance: BACLOFEN
     Indication: Neuritis
     Dosage: 5 ML, QD (LIQUID)
     Route: 048
     Dates: start: 202410

REACTIONS (25)
  - Hyperprolactinaemia [Not Recovered/Not Resolved]
  - Hypoaesthesia [Recovered/Resolved]
  - Intracranial pressure increased [Not Recovered/Not Resolved]
  - Multiple sclerosis [Recovering/Resolving]
  - Vision blurred [Recovering/Resolving]
  - Hypersensitivity [Not Recovered/Not Resolved]
  - Rash erythematous [Not Recovered/Not Resolved]
  - Menstruation irregular [Not Recovered/Not Resolved]
  - Nipple pain [Not Recovered/Not Resolved]
  - Tachycardia [Not Recovered/Not Resolved]
  - Decreased immune responsiveness [Not Recovered/Not Resolved]
  - Headache [Not Recovered/Not Resolved]
  - Weight increased [Not Recovered/Not Resolved]
  - Oedema peripheral [Recovering/Resolving]
  - Pain in extremity [Recovering/Resolving]
  - Nasopharyngitis [Recovered/Resolved]
  - Heavy menstrual bleeding [Recovered/Resolved]
  - Lymphopenia [Unknown]
  - Tremor [Not Recovered/Not Resolved]
  - Balance disorder [Not Recovered/Not Resolved]
  - Menstrual disorder [Unknown]
  - Dizziness [Not Recovered/Not Resolved]
  - Thermal burn [Not Recovered/Not Resolved]
  - Menstruation delayed [Not Recovered/Not Resolved]
  - White blood cell count decreased [Not Recovered/Not Resolved]

NARRATIVE: CASE EVENT DATE: 20241001
